FAERS Safety Report 4365541-4 (Version None)
Quarter: 2004Q2

REPORT INFORMATION
  Report Type: 
  Country: None (occurrence: None)
  Receive Date: 20040526
  Receipt Date: 20040518
  Transmission Date: 20050107
  Serious: Yes (Other)
  Sender: FDA-Public Use
  Company Number: NL-GLAXOSMITHKLINE-B0333358A

PATIENT

DRUGS (1)
  1. DUTASTERIDE [Suspect]
     Dates: start: 20040503

REACTIONS (1)
  - CEREBROVASCULAR ACCIDENT [None]
